FAERS Safety Report 14646865 (Version 1)
Quarter: 2018Q1

REPORT INFORMATION
  Report Type: Spontaneous
  Country: US (occurrence: US)
  Receive Date: 20180316
  Receipt Date: 20180316
  Transmission Date: 20180509
  Serious: No
  Sender: FDA-Public Use
  Company Number: US-LEO PHARMA-307836

PATIENT
  Age: 43 Year
  Sex: Male

DRUGS (7)
  1. BORTEZOMIB [Concomitant]
     Active Substance: BORTEZOMIB
     Indication: PLASMACYTOMA
  2. KENALOG [Concomitant]
     Active Substance: TRIAMCINOLONE ACETONIDE
     Indication: PLASMACYTOMA
     Route: 026
  3. PSORALEN [Concomitant]
     Active Substance: PSORALEN
     Indication: PLASMACYTOMA
  4. PROTOPIC [Suspect]
     Active Substance: TACROLIMUS
     Indication: PLASMACYTOMA
     Route: 061
  5. OXSORALEN [Concomitant]
     Active Substance: METHOXSALEN
     Indication: PLASMACYTOMA
  6. KETOCONAZOLE. [Concomitant]
     Active Substance: KETOCONAZOLE
     Indication: PRODUCT USED FOR UNKNOWN INDICATION
  7. TOPICAL STEROIDS [Concomitant]
     Active Substance: UNSPECIFIED INGREDIENT
     Indication: PLASMACYTOMA
     Route: 061

REACTIONS (2)
  - Product use in unapproved indication [Unknown]
  - Drug ineffective for unapproved indication [Unknown]
